FAERS Safety Report 9178526 (Version 1)
Quarter: 2013Q1

REPORT INFORMATION
  Report Type: Spontaneous
  Country: US (occurrence: US)
  Receive Date: 20130321
  Receipt Date: 20130321
  Transmission Date: 20140127
  Serious: Yes (Hospitalization, Other)
  Sender: FDA-Public Use
  Company Number: US-ROCHE-1203555

PATIENT
  Age: 67 Year
  Sex: Female
  Weight: 76.27 kg

DRUGS (2)
  1. BONIVA [Suspect]
     Indication: PRODUCT USED FOR UNKNOWN INDICATION
     Route: 065
  2. FOSAMAX [Suspect]
     Indication: OSTEOPOROSIS
     Route: 065
     Dates: start: 20050920

REACTIONS (3)
  - Femur fracture [Unknown]
  - Ankle fracture [Unknown]
  - Radius fracture [Unknown]
